FAERS Safety Report 5193962-9 (Version None)
Quarter: 2006Q4

REPORT INFORMATION
  Report Type: 
  Country: None (occurrence: None)
  Receive Date: 20061222
  Receipt Date: 20061212
  Transmission Date: 20070319
  Serious: Yes (Other)
  Sender: FDA-Public Use
  Company Number: 2006S1011458

PATIENT
  Age: 43 Year
  Sex: Male

DRUGS (3)
  1. PHENYTOIN SODIUM [Suspect]
     Indication: CONVULSION
     Dosage: 400 MG; HS; PO
     Route: 048
     Dates: start: 20060501
  2. INDOMETHACIN [Concomitant]
  3. VICODIN [Concomitant]

REACTIONS (4)
  - ANTICONVULSANT DRUG LEVEL BELOW THERAPEUTIC [None]
  - ARTHRITIS [None]
  - CONVULSION [None]
  - TREATMENT NONCOMPLIANCE [None]
